FAERS Safety Report 4440760-7 (Version None)
Quarter: 2004Q3

REPORT INFORMATION
  Report Type: 
  Country: None (occurrence: None)
  Receive Date: 20040728
  Receipt Date: 20040330
  Transmission Date: 20050211
  Serious: No
  Sender: FDA-Public Use
  Company Number: USA040363597

PATIENT
  Age: 43 Year
  Sex: Female
  Weight: 56 kg

DRUGS (6)
  1. STRATTERA [Suspect]
     Indication: ATTENTION DEFICIT/HYPERACTIVITY DISORDER
     Dosage: 80 MG DAY
     Dates: start: 20040124, end: 20040226
  2. PRINIVIL [Concomitant]
  3. EFFEXOR [Concomitant]
  4. NOVOLOG [Concomitant]
  5. VICOPROFEN [Concomitant]
  6. PREVACID [Concomitant]

REACTIONS (1)
  - BLOOD GLUCOSE INCREASED [None]
